FAERS Safety Report 9947979 (Version 1)
Quarter: 2014Q1

REPORT INFORMATION
  Report Type: Spontaneous
  Country: US (occurrence: None)
  Receive Date: 20140122
  Receipt Date: 20140122
  Transmission Date: 20141002
  Serious: Yes (Other)
  Sender: FDA-Public Use
  Company Number: 25-OCT-2013

PATIENT
  Age: 50 Year
  Sex: Male
  Weight: 113.8 kg

DRUGS (3)
  1. BELVIQ [Suspect]
     Indication: WEIGHT DECREASED
     Route: 048
     Dates: start: 20131023
  2. LISINOPRIL (LISINOPRIL) [Concomitant]
  3. GLIMEPIRIDE (GLIMEPIRIDE) [Concomitant]

REACTIONS (3)
  - Feeling abnormal [None]
  - Dizziness [None]
  - Headache [None]
